FAERS Safety Report 11303173 (Version 2)
Quarter: 2015Q3

REPORT INFORMATION
  Report Type: Report from Study
  Country: IT (occurrence: IT)
  Receive Date: 20150723
  Receipt Date: 20150731
  Transmission Date: 20151125
  Serious: Yes (Death, Hospitalization)
  Sender: FDA-Public Use
  Company Number: PHHO2015IT011698

PATIENT
  Age: 65 Year
  Sex: Female
  Weight: 70 kg

DRUGS (6)
  1. INC424 [Suspect]
     Active Substance: RUXOLITINIB
     Indication: MYELOFIBROSIS
     Dosage: 10 MG, BID
     Route: 048
     Dates: start: 20140529
  2. ARA-C [Suspect]
     Active Substance: CYTARABINE
     Indication: MYELOFIBROSIS
     Dosage: 3000 MG/500 ML, QD
     Route: 042
     Dates: start: 20150421, end: 20150424
  3. FLUDARA [Suspect]
     Active Substance: FLUDARABINE PHOSPHATE
     Indication: MYELOFIBROSIS
     Dosage: 45 MG/100 ML, QD
     Route: 042
     Dates: start: 20150421, end: 20150424
  4. GARDENALE [Concomitant]
     Active Substance: PHENOBARBITAL
     Indication: EPILEPSY
     Dosage: 100 MG, QD
     Route: 065
     Dates: start: 1979, end: 20150616
  5. NOVANTRONE [Suspect]
     Active Substance: MITOXANTRONE HYDROCHLORIDE
     Indication: MYELOFIBROSIS
     Dosage: 9 MG/100 MG, QD
     Route: 042
     Dates: start: 20150421, end: 20150422
  6. TOTALIP [Concomitant]
     Active Substance: ATORVASTATIN
     Indication: DYSLIPIDAEMIA
     Dosage: 10 MG, QD
     Route: 065
     Dates: start: 2000, end: 20150615

REACTIONS (2)
  - General physical health deterioration [Not Recovered/Not Resolved]
  - Small cell carcinoma [Fatal]

NARRATIVE: CASE EVENT DATE: 20150525
